FAERS Safety Report 10074193 (Version 1)
Quarter: 2014Q2

REPORT INFORMATION
  Report Type: Spontaneous
  Country: US (occurrence: US)
  Receive Date: 20140411
  Receipt Date: 20140411
  Transmission Date: 20141212
  Serious: No
  Sender: FDA-Public Use
  Company Number: US-009507513-1403USA004465

PATIENT
  Age: 86 Year
  Sex: Male

DRUGS (4)
  1. MIRALAX [Suspect]
     Indication: CONSTIPATION
     Dosage: 34 G, ONCE
     Route: 048
     Dates: start: 20140303
  2. MIRALAX [Suspect]
     Dosage: 17 G, QD
     Route: 048
     Dates: start: 2013
  3. LIPITOR [Concomitant]
     Indication: PRODUCT USED FOR UNKNOWN INDICATION
     Dosage: UNK, UNKNOWN
  4. LEVOTHYROXINE SODIUM [Concomitant]
     Indication: PRODUCT USED FOR UNKNOWN INDICATION
     Dosage: UNK, UNKNOWN

REACTIONS (4)
  - Abdominal pain [Unknown]
  - Overdose [Unknown]
  - Incorrect drug administration duration [Unknown]
  - Drug ineffective [Unknown]
